FAERS Safety Report 5079347-4 (Version None)
Quarter: 2006Q3

REPORT INFORMATION
  Report Type: 
  Country: None (occurrence: None)
  Receive Date: 20060814
  Receipt Date: 20060803
  Transmission Date: 20061208
  Serious: Yes (Hospitalization)
  Sender: FDA-Public Use
  Company Number: NL-JNJFOC-20060802484

PATIENT
  Sex: Male

DRUGS (11)
  1. TRAMADOL HCL [Suspect]
     Indication: PAIN
     Route: 065
  2. BLINDED TRIAL MEDICATION [Suspect]
     Indication: DIABETES MELLITUS NON-INSULIN-DEPENDENT
     Route: 048
  3. METOPROLOL TARTRATE [Concomitant]
     Route: 065
  4. PERINDOPRIL ERUMINE [Concomitant]
     Route: 065
  5. CARBASPIRIN CALCIUM [Concomitant]
     Route: 065
  6. PERINDOPRIL ERUMINE [Concomitant]
     Route: 065
  7. ATORVASTATIN CALCIUM [Concomitant]
     Route: 065
  8. METFORMIN HYDROCHLORIDE [Concomitant]
     Route: 065
  9. PANTOPRAZOLE SODIUM [Concomitant]
     Route: 065
  10. AMOXICILLIN [Concomitant]
     Indication: INFECTION
     Route: 065
  11. ACETAMINOPHEN [Concomitant]
     Indication: PAIN
     Route: 065

REACTIONS (4)
  - COMA [None]
  - HYPERSENSITIVITY [None]
  - INTERMITTENT CLAUDICATION [None]
  - LOCAL SWELLING [None]
